FAERS Safety Report 6093808-0 (Version None)
Quarter: 2009Q1

REPORT INFORMATION
  Report Type: 
  Country: None (occurrence: None)
  Receive Date: 20090226
  Receipt Date: 20090216
  Transmission Date: 20090719
  Serious: Yes (Hospitalization)
  Sender: FDA-Public Use
  Company Number: TR-ELI_LILLY_AND_COMPANY-TR200902004637

PATIENT
  Age: 73 Year
  Sex: Female

DRUGS (7)
  1. HUMALOG [Suspect]
     Indication: TYPE 2 DIABETES MELLITUS
     Dosage: 21 IU, EACH MORNING
     Route: 058
  2. HUMALOG [Suspect]
     Dosage: 24 IU, DAILY (1/D)
     Route: 058
  3. HUMALOG [Suspect]
     Dosage: 25 IU, EACH EVENING
     Route: 058
  4. GLIFOR [Concomitant]
     Indication: TYPE 2 DIABETES MELLITUS
     Dosage: UNK, 2/D
     Route: 048
  5. COVERSYL /00790701/ [Concomitant]
     Indication: HYPERTENSION
     Dosage: UNK, 2/D
     Route: 048
  6. CORASPIN [Concomitant]
     Indication: CARDIAC DISORDER
     Dosage: UNK, DAILY (1/D)
     Route: 048
  7. LANTUS [Concomitant]
     Indication: TYPE 2 DIABETES MELLITUS
     Dosage: 26 IU, DAILY (1/D)
     Route: 058

REACTIONS (2)
  - LIMB INJURY [None]
  - TOE AMPUTATION [None]
